FAERS Safety Report 9753920 (Version 1)
Quarter: 2013Q4

REPORT INFORMATION
  Report Type: Spontaneous
  Country: US (occurrence: None)
  Receive Date: 20131211
  Receipt Date: 20131211
  Transmission Date: 20140711
  Serious: Yes (Other)
  Sender: FDA-Public Use
  Company Number: 1312-1545

PATIENT
  Age: 86 Year
  Sex: Male

DRUGS (1)
  1. EYLEA (AFLIBERCEPT) (INJECTION) (AFLIBERCEPT) [Suspect]

REACTIONS (1)
  - Eye haemorrhage [None]
